FAERS Safety Report 21252248 (Version 2)
Quarter: 2022Q3

REPORT INFORMATION
  Report Type: Report from Study
  Country: IT (occurrence: None)
  Receive Date: 20220825
  Receipt Date: 20220830
  Transmission Date: 20221027
  Serious: Yes (Hospitalization)
  Sender: FDA-Public Use
  Company Number: IT-ROCHE-3154181

PATIENT
  Age: 72 Year
  Sex: Female
  Weight: 52 kg

DRUGS (11)
  1. TIRAGOLUMAB [Suspect]
     Active Substance: TIRAGOLUMAB
     Indication: Non-small cell lung cancer
     Dosage: ON 08/JUN/2022, MOST RECENT DOSE OF BLINDED TIRAGOLUMAB WAS GIVEN PRIOR TO AE/SAE
     Route: 042
     Dates: start: 20210805
  2. ATEZOLIZUMAB [Suspect]
     Active Substance: ATEZOLIZUMAB
     Indication: Non-small cell lung cancer
     Dosage: ON 08/JUN/2022, MOST RECENT DOSE(1200 MG) OF ATEZOLIZUMAB WAS GIVEN PRIOR AE/SAE
     Route: 041
     Dates: start: 20210805
  3. AMLODIPINE [Concomitant]
     Active Substance: AMLODIPINE BESYLATE
     Indication: Hypertension
     Route: 048
     Dates: start: 2015
  4. LINAGLIPTIN [Concomitant]
     Active Substance: LINAGLIPTIN
     Indication: Diabetes mellitus
     Route: 048
     Dates: start: 20210804
  5. METFORMIN [Concomitant]
     Active Substance: METFORMIN HYDROCHLORIDE
     Indication: Diabetes mellitus
     Dates: start: 20210827
  6. CETIRIZINE [Concomitant]
     Active Substance: CETIRIZINE HYDROCHLORIDE
     Indication: Erythema
     Route: 048
     Dates: start: 20211029
  7. FLU CORTANEST [Concomitant]
     Indication: Erythema
     Dosage: 1 OTHER, 0.1%
     Route: 061
     Dates: start: 20211029
  8. PREDNISONE [Concomitant]
     Active Substance: PREDNISONE
     Indication: Erythema
     Route: 048
     Dates: start: 20211221, end: 20220811
  9. PREDNISONE [Concomitant]
     Active Substance: PREDNISONE
     Route: 048
     Dates: start: 20220812
  10. METHYLPREDNISOLONE [Concomitant]
     Active Substance: METHYLPREDNISOLONE
     Route: 042
     Dates: start: 20220804, end: 20220810
  11. METHYLPREDNISOLONE [Concomitant]
     Active Substance: METHYLPREDNISOLONE
     Route: 042
     Dates: start: 20220811, end: 20220811

REACTIONS (1)
  - Restrictive cardiomyopathy [Recovered/Resolved]

NARRATIVE: CASE EVENT DATE: 20220803
